FAERS Safety Report 10025615 (Version 1)
Quarter: 2014Q1

REPORT INFORMATION
  Report Type: Spontaneous
  Country: US (occurrence: None)
  Receive Date: 20140304
  Receipt Date: 20140304
  Transmission Date: 20141002
  Serious: Yes (Other)
  Sender: FDA-Public Use
  Company Number: RB-60958-2013

PATIENT
  Age: 29 Year
  Sex: Male

DRUGS (4)
  1. SUBOXONE [Suspect]
     Indication: DRUG DEPENDENCE
     Dosage: DOSING DETAILS UNKNOWN SUBLINGUAL
  2. SUBOXONE [Suspect]
     Indication: DRUG DEPENDENCE
     Dosage: SUBOXONE DETAILS UNKNOWN SUBLINGUAL
  3. BUPRENORPHINE 8 MG (NONE) [Suspect]
     Indication: DRUG DEPENDENCE
     Dosage: THE PATIENT WAS CUTTIN THE TABLET TO ACHIEVE DOSING SUBLINGUAL
     Dates: end: 201311
  4. SUBUTEX [Suspect]
     Indication: DRUG DEPENDENCE
     Dosage: DOSING DETAILS UNKNOWN

REACTIONS (7)
  - Hypersensitivity [None]
  - Throat tightness [None]
  - Nausea [None]
  - Rash [None]
  - Wrong technique in drug usage process [None]
  - Drug withdrawal syndrome [None]
  - Drug dependence [None]
